FAERS Safety Report 14745345 (Version 1)
Quarter: 2018Q2

REPORT INFORMATION
  Report Type: Spontaneous
  Country: US (occurrence: US)
  Receive Date: 20180405
  Receipt Date: 20180405
  Transmission Date: 20180711
  Serious: Yes (Other)
  Sender: FDA-Public Use
  Company Number: None

PATIENT
  Age: 87 Year
  Sex: Female
  Weight: 84.82 kg

DRUGS (15)
  1. KLOR-CON [Concomitant]
     Active Substance: POTASSIUM CHLORIDE
  2. FOLIC ACID. [Concomitant]
     Active Substance: FOLIC ACID
  3. CRANBERRY PLUS C [Concomitant]
  4. ESTER C [Concomitant]
  5. ASPIRIN. [Concomitant]
     Active Substance: ASPIRIN
  6. BG [Concomitant]
  7. LASIX [Concomitant]
     Active Substance: FUROSEMIDE
  8. NITROGLYCERINE [Concomitant]
     Active Substance: NITROGLYCERIN
  9. CQ10 [Concomitant]
     Active Substance: UBIDECARENONE
  10. MAGNESIUM CLORIDE [Concomitant]
  11. DORZOLAMIDE [Concomitant]
     Active Substance: DORZOLAMIDE
  12. HYDROCHLOROTHIAZIDE. [Concomitant]
     Active Substance: HYDROCHLOROTHIAZIDE
  13. LOSARTAN/HCTZ [Concomitant]
     Active Substance: HYDROCHLOROTHIAZIDE\LOSARTAN
  14. METOPROLOL. [Concomitant]
     Active Substance: METOPROLOL
  15. LOPRESSOR [Suspect]
     Active Substance: METOPROLOL TARTRATE
     Dosage: ?          QUANTITY:25 MG MILLIGRAM(S);?
     Route: 048

REACTIONS (1)
  - Amnesia [None]

NARRATIVE: CASE EVENT DATE: 2017
